FAERS Safety Report 7332553-8 (Version None)
Quarter: 2011Q1

REPORT INFORMATION
  Report Type: 
  Country: None (occurrence: None)
  Receive Date: 20110304
  Receipt Date: 20110221
  Transmission Date: 20110831
  Serious: Yes (Disabling)
  Sender: FDA-Public Use
  Company Number: PHFR2011GB01472

PATIENT
  Sex: Female
  Weight: 78 kg

DRUGS (5)
  1. ZOLEDRONIC ACID [Suspect]
     Dosage: 4 MG, UNK
     Dates: start: 20100108, end: 20100430
  2. ZOLEDRONIC ACID [Suspect]
     Indication: METASTASES TO BONE
     Dosage: 4 MG, UNK
     Route: 042
     Dates: start: 20080402, end: 20090918
  3. TAMOXIFEN CITRATE [Concomitant]
     Indication: BREAST CANCER METASTATIC
     Dosage: 20 MG, UNK
     Route: 048
     Dates: start: 20090107
  4. PACLITAXEL [Concomitant]
     Indication: BREAST CANCER METASTATIC
     Dosage: 90 MG/M2, QW
     Route: 042
     Dates: start: 20080402, end: 20080704
  5. HERCEPTIN [Concomitant]
     Indication: BREAST CANCER METASTATIC
     Dosage: 6 MG/KG, BIW
     Route: 043
     Dates: start: 20080301

REACTIONS (3)
  - PAIN IN JAW [None]
  - PURULENT DISCHARGE [None]
  - OSTEONECROSIS OF JAW [None]
